FAERS Safety Report 10201908 (Version 2)
Quarter: 2014Q2

REPORT INFORMATION
  Report Type: Spontaneous
  Country: US (occurrence: US)
  Receive Date: 20140528
  Receipt Date: 20140624
  Transmission Date: 20141212
  Serious: No
  Sender: FDA-Public Use
  Company Number: US-PFIZER INC-2014143119

PATIENT
  Age: 70 Year
  Sex: Female
  Weight: 75.7 kg

DRUGS (4)
  1. LIPITOR [Suspect]
     Indication: BLOOD CHOLESTEROL INCREASED
     Dosage: 80 MG, 1X/DAY
     Route: 048
  2. TOPROL XL [Concomitant]
     Dosage: UNK
  3. ZETIA [Concomitant]
     Dosage: 10 MG, UNK
  4. METFORMIN [Concomitant]
     Dosage: UNK

REACTIONS (2)
  - Vomiting [Unknown]
  - Diarrhoea [Unknown]
